FAERS Safety Report 12494200 (Version 2)
Quarter: 2016Q3

REPORT INFORMATION
  Report Type: Spontaneous
  Country: SG (occurrence: SG)
  Receive Date: 20160623
  Receipt Date: 20160901
  Transmission Date: 20161109
  Serious: Yes (Hospitalization, Other)
  Sender: FDA-Public Use
  Company Number: SG-BRISTOL-MYERS SQUIBB COMPANY-BMS-2016-047794

PATIENT
  Age: 46 Year
  Sex: Female

DRUGS (5)
  1. SPRYCEL [Suspect]
     Active Substance: DASATINIB
     Dosage: 140 MG, QD
     Route: 048
     Dates: start: 20140416, end: 20140812
  2. INTERFERON ALFA NOS [Concomitant]
     Active Substance: INTERFERON ALFA-2A OR INTERFERON ALFA-2B
     Indication: PRODUCT USED FOR UNKNOWN INDICATION
     Dosage: UNK
     Route: 065
     Dates: start: 20160210, end: 20160405
  3. SPRYCEL [Suspect]
     Active Substance: DASATINIB
     Dosage: 140 MG, QD
     Route: 048
     Dates: start: 20140827, end: 20160308
  4. SPRYCEL [Suspect]
     Active Substance: DASATINIB
     Indication: CHRONIC MYELOID LEUKAEMIA
     Dosage: 140 MG, QD
     Route: 048
     Dates: start: 20140317, end: 20140330
  5. SPRYCEL [Suspect]
     Active Substance: DASATINIB
     Dosage: 140 MG, QD
     Route: 048
     Dates: start: 20160406, end: 20160518

REACTIONS (10)
  - Tinnitus [Unknown]
  - Papilloedema [Unknown]
  - Blindness [Unknown]
  - Ataxia [Recovered/Resolved]
  - Pingueculitis [Unknown]
  - Deafness [Unknown]
  - Balance disorder [Unknown]
  - Optic ischaemic neuropathy [Unknown]
  - Cataract [Unknown]
  - Drug hypersensitivity [Unknown]

NARRATIVE: CASE EVENT DATE: 201601
